FAERS Safety Report 13274527 (Version 2)
Quarter: 2017Q1

REPORT INFORMATION
  Report Type: Report from Study
  Country: None (occurrence: RO)
  Receive Date: 20170227
  Receipt Date: 20170315
  Transmission Date: 20170428
  Serious: Yes (Hospitalization)
  Sender: FDA-Public Use
  Company Number: RO-ABBVIE-17P-135-1888231-00

PATIENT
  Age: 42 Year
  Sex: Female

DRUGS (1)
  1. DUODOPA [Suspect]
     Active Substance: CARBIDOPA\LEVODOPA
     Indication: PARKINSON^S DISEASE
     Dosage: MD 10ML??CR 2,5ML??ED 1ML
     Route: 050
     Dates: start: 20150211

REACTIONS (1)
  - Cholelithiasis [Recovering/Resolving]

NARRATIVE: CASE EVENT DATE: 20170218
